FAERS Safety Report 5742627-0 (Version None)
Quarter: 2008Q2

REPORT INFORMATION
  Report Type: 
  Country: None (occurrence: None)
  Receive Date: 20080515
  Receipt Date: 20080515
  Transmission Date: 20081010
  Serious: No
  Sender: FDA-Public Use
  Company Number: None

PATIENT
  Sex: Male
  Weight: 104.3273 kg

DRUGS (1)
  1. VYTORIN [Suspect]
     Indication: BLOOD CHOLESTEROL
     Dosage: 10/20 MG TABS 1 TABLET DAILY
     Dates: start: 20061204, end: 20071212

REACTIONS (3)
  - LIMB DISCOMFORT [None]
  - MYALGIA [None]
  - NASAL SEPTUM DEVIATION [None]
